FAERS Safety Report 7464524-5 (Version None)
Quarter: 2011Q1

REPORT INFORMATION
  Report Type: 
  Country: None (occurrence: None)
  Receive Date: 20110302
  Receipt Date: 20101206
  Transmission Date: 20110831
  Serious: Yes (Hospitalization)
  Sender: FDA-Public Use
  Company Number: 163-21880-10120688

PATIENT
  Sex: Female

DRUGS (2)
  1. ZOMETA [Suspect]
  2. REVLIMID [Suspect]
     Indication: MULTIPLE MYELOMA
     Dosage: 15 MG, 1 IN 1 D, PO
     Route: 048
     Dates: start: 20091105

REACTIONS (1)
  - ADVERSE DRUG REACTION [None]
